FAERS Safety Report 9626122 (Version 2)
Quarter: 2013Q4

REPORT INFORMATION
  Report Type: Spontaneous
  Country: US (occurrence: US)
  Receive Date: 20131016
  Receipt Date: 20131112
  Transmission Date: 20140711
  Serious: Yes (Death, Hospitalization)
  Sender: FDA-Public Use
  Company Number: US-B.I. PHARMACEUTICALS,INC./RIDGEFIELD-2013-BI-32624BP

PATIENT
  Sex: Male

DRUGS (1)
  1. PRADAXA [Suspect]

REACTIONS (3)
  - Cerebral haemorrhage [Fatal]
  - Head injury [Unknown]
  - Fall [Recovered/Resolved]
